FAERS Safety Report 9845283 (Version 1)
Quarter: 2014Q1

REPORT INFORMATION
  Report Type: Spontaneous
  Country: US (occurrence: None)
  Receive Date: 20140123
  Receipt Date: 20140123
  Transmission Date: 20141002
  Serious: Yes (Disabling)
  Sender: FDA-Public Use
  Company Number: None

PATIENT
  Age: 53 Year
  Sex: Female
  Weight: 79.38 kg

DRUGS (3)
  1. OXCARBAZEPINE [Suspect]
     Indication: CONVULSION
     Dosage: 2-3 TABLETS TWICE DAILY TAKEN BY MOUTH?ABOUT 6 WEEKS
     Route: 048
  2. OXCARBAZEPINE [Suspect]
     Indication: AURA
     Dosage: 2-3 TABLETS TWICE DAILY TAKEN BY MOUTH?ABOUT 6 WEEKS
     Route: 048
  3. OXCARBAZEPINE [Suspect]
     Indication: POST PROCEDURAL COMPLICATION
     Dosage: 2-3 TABLETS TWICE DAILY TAKEN BY MOUTH?ABOUT 6 WEEKS
     Route: 048

REACTIONS (3)
  - Convulsion [None]
  - Condition aggravated [None]
  - Product substitution issue [None]
